FAERS Safety Report 25724866 (Version 2)
Quarter: 2025Q4

REPORT INFORMATION
  Report Type: Other
  Country: GB (occurrence: GB)
  Receive Date: 20250826
  Receipt Date: 20251210
  Transmission Date: 20260118
  Serious: Yes (Death, Other)
  Sender: ASPEN
  Company Number: GB-STEMLINE THERAPEUTICS, INC-2025-STML-GB002821

PATIENT

DRUGS (3)
  1. DEXAMETHASONE [Suspect]
     Active Substance: DEXAMETHASONE
     Indication: Plasma cell myeloma refractory
     Dosage: UNK
     Route: 065
  2. SELINEXOR [Suspect]
     Active Substance: SELINEXOR
     Indication: Plasma cell myeloma refractory
     Dosage: 100 MILLIGRAM (100 MG, UNK)
     Route: 048
     Dates: start: 20250407
  3. VELCADE [Suspect]
     Active Substance: BORTEZOMIB
     Indication: Plasma cell myeloma refractory
     Dosage: UNK
     Route: 065

REACTIONS (3)
  - Pneumonia [Fatal]
  - Influenza [Fatal]
  - COVID-19 [Fatal]
